FAERS Safety Report 9693287 (Version 2)
Quarter: 2013Q4

REPORT INFORMATION
  Report Type: Spontaneous
  Country: US (occurrence: None)
  Receive Date: 20131114
  Receipt Date: 20131121
  Transmission Date: 20140711
  Serious: Yes (Other)
  Sender: FDA-Public Use
  Company Number: 2013-US-002783

PATIENT
  Age: 62 Year
  Sex: Female

DRUGS (5)
  1. XYREM [Suspect]
     Indication: FIBROMYALGIA
     Dosage: 3 G, BID, ORAL
     Route: 048
     Dates: start: 200509
  2. MIRAPEX (PRAMILEXOLE DIHYDROCHLORIDE) [Concomitant]
  3. LEVOTHYROXINE [Concomitant]
  4. ASPIRIN (ACETYLSALICYLIC ACID) [Concomitant]
  5. SIMVASTATIN [Concomitant]

REACTIONS (5)
  - Myocardial infarction [None]
  - Dyspnoea [None]
  - Intestinal obstruction [None]
  - Small intestinal resection [None]
  - Parkinson^s disease [None]
